FAERS Safety Report 10085681 (Version 1)
Quarter: 2014Q2

REPORT INFORMATION
  Report Type: Spontaneous
  Country: US (occurrence: US)
  Receive Date: 20140418
  Receipt Date: 20140418
  Transmission Date: 20141212
  Serious: Yes (Hospitalization)
  Sender: FDA-Public Use
  Company Number: US-JNJFOC-20140409575

PATIENT
  Age: 57 Year
  Sex: Female
  Weight: 97.98 kg

DRUGS (14)
  1. XARELTO [Suspect]
     Indication: DEEP VEIN THROMBOSIS
     Route: 048
     Dates: start: 20140407
  2. ASA 325 [Concomitant]
     Route: 065
  3. DUONEB [Concomitant]
     Route: 065
  4. BACLOFEN [Concomitant]
     Route: 065
  5. ROCEPHIN [Concomitant]
     Route: 065
  6. DILTIAZEM [Concomitant]
     Route: 065
  7. VITAMIN D [Concomitant]
     Route: 065
  8. INSULIN [Concomitant]
     Route: 065
  9. METOPROLOL [Concomitant]
     Route: 065
  10. SINGULAIR [Concomitant]
     Route: 065
  11. PRILOSEC [Concomitant]
     Route: 065
  12. ADVAIR [Concomitant]
     Route: 065
  13. ZOCOR [Concomitant]
     Route: 065
  14. JANUVIA [Concomitant]
     Route: 065

REACTIONS (1)
  - Activated partial thromboplastin time prolonged [Unknown]
